FAERS Safety Report 7159461-X (Version None)
Quarter: 2010Q4

REPORT INFORMATION
  Report Type: 
  Country: None (occurrence: None)
  Receive Date: 20101214
  Receipt Date: 20100908
  Transmission Date: 20110411
  Serious: No
  Sender: FDA-Public Use
  Company Number: US-ASTRAZENECA-2010SE42334

PATIENT
  Age: 31076 Day
  Sex: Female
  Weight: 84.4 kg

DRUGS (5)
  1. CRESTOR [Suspect]
     Indication: HYPERCHOLESTEROLAEMIA
     Route: 048
     Dates: start: 20100907
  2. PROZAC [Concomitant]
  3. ALEVE (CAPLET) [Concomitant]
  4. DIOVAN [Concomitant]
     Indication: HYPERTENSION
  5. VITAMINS [Concomitant]

REACTIONS (1)
  - MALAISE [None]
